FAERS Safety Report 21968376 (Version 1)
Quarter: 2023Q1

REPORT INFORMATION
  Report Type: Spontaneous
  Country: US (occurrence: US)
  Receive Date: 20230208
  Receipt Date: 20230208
  Transmission Date: 20230417
  Serious: No
  Sender: FDA-Public Use
  Company Number: US-PFIZER INC-PV202300024390

PATIENT
  Age: 54 Year
  Sex: Male

DRUGS (7)
  1. EUCRISA [Suspect]
     Active Substance: CRISABOROLE
     Indication: Dermatitis atopic
     Dosage: UNK
  2. HYDROCORTISONE [Suspect]
     Active Substance: HYDROCORTISONE
     Indication: Dermatitis atopic
     Dosage: UNK
  3. CLOBETASOL [Suspect]
     Active Substance: CLOBETASOL
     Indication: Dermatitis atopic
     Dosage: UNK
  4. FLUOCINONIDE [Suspect]
     Active Substance: FLUOCINONIDE
     Indication: Dermatitis atopic
     Dosage: UNK
  5. PIMECROLIMUS [Suspect]
     Active Substance: PIMECROLIMUS
     Indication: Dermatitis atopic
     Dosage: UNK
  6. PREDNISONE [Suspect]
     Active Substance: PREDNISONE
     Indication: Dermatitis atopic
     Dosage: UNK
  7. TRIAMCINOLONE [Suspect]
     Active Substance: TRIAMCINOLONE
     Indication: Dermatitis atopic
     Dosage: UNK

REACTIONS (1)
  - Drug ineffective [Unknown]
